FAERS Safety Report 6433745-2 (Version None)
Quarter: 2009Q4

REPORT INFORMATION
  Report Type: 
  Country: None (occurrence: None)
  Receive Date: 20091110
  Receipt Date: 20091102
  Transmission Date: 20100525
  Serious: Yes (Other)
  Sender: FDA-Public Use
  Company Number: US-ASTRAZENECA-2009UW10605

PATIENT
  Age: 42 Year
  Sex: Male
  Weight: 90.7 kg

DRUGS (4)
  1. SEROQUEL [Suspect]
     Indication: DEPRESSION
     Route: 048
     Dates: start: 19990101, end: 20070515
  2. ABILIFY [Concomitant]
     Dates: start: 20060101
  3. GEODON [Concomitant]
     Dates: start: 20061101, end: 20070501
  4. RISPERDAL [Concomitant]
     Dosage: 2-3 MG
     Dates: start: 20031101, end: 20080801

REACTIONS (3)
  - DIABETES MELLITUS [None]
  - DIABETIC COMPLICATION [None]
  - NEUROPATHY PERIPHERAL [None]
